FAERS Safety Report 4836020-2 (Version None)
Quarter: 2005Q4

REPORT INFORMATION
  Report Type: 
  Country: None (occurrence: None)
  Receive Date: 20051123
  Receipt Date: 20051118
  Transmission Date: 20060501
  Serious: Yes (Other)
  Sender: FDA-Public Use
  Company Number: 2005UW17599

PATIENT
  Age: 82 Year
  Sex: Female

DRUGS (4)
  1. SEROQUEL [Suspect]
     Indication: MENTAL DISORDER
     Route: 048
  2. CEMOPRIL [Concomitant]
  3. ATARAX [Concomitant]
  4. BENADRYL [Concomitant]

REACTIONS (3)
  - IMPAIRED HEALING [None]
  - OPEN WOUND [None]
  - RASH [None]
